FAERS Safety Report 24341607 (Version 1)
Quarter: 2024Q3

REPORT INFORMATION
  Report Type: Spontaneous
  Country: US (occurrence: US)
  Receive Date: 20240920
  Receipt Date: 20240920
  Transmission Date: 20241017
  Serious: Yes (Other)
  Sender: BRISTOL MYERS SQUIBB
  Company Number: US-BRISTOL-MYERS SQUIBB COMPANY-2024-149130

PATIENT
  Age: 83 Year
  Sex: Male
  Weight: 50.89 kg

DRUGS (12)
  1. REVLIMID [Suspect]
     Active Substance: LENALIDOMIDE
     Indication: Plasma cell myeloma
     Route: 048
     Dates: start: 20240905, end: 20240913
  2. SIMVASTATIN [Concomitant]
     Active Substance: SIMVASTATIN
  3. GLIPIZIDE [Concomitant]
     Active Substance: GLIPIZIDE
  4. PIOGLITAZONE HYDROCHLORIDE [Concomitant]
     Active Substance: PIOGLITAZONE HYDROCHLORIDE
  5. EZETIMIBE [Concomitant]
     Active Substance: EZETIMIBE
  6. METOPROLOL SUCCINATE [Concomitant]
     Active Substance: METOPROLOL SUCCINATE
     Dosage: ER
  7. NIFEDIPINE [Concomitant]
     Active Substance: NIFEDIPINE
     Dosage: ER
  8. ACYCLOVIR [Concomitant]
     Active Substance: ACYCLOVIR
  9. ASPIRIN [Concomitant]
     Active Substance: ASPIRIN
     Dosage: MCD
  10. ACETAMINOPHEN [Concomitant]
     Active Substance: ACETAMINOPHEN
  11. PROFILE [OMEPRAZOLE] [Concomitant]
     Dosage: COMPLETE
  12. TRULICITY [Concomitant]
     Active Substance: DULAGLUTIDE
     Dosage: DOSE- 0.75MG/0.5ML

REACTIONS (1)
  - Plasma cell myeloma [Unknown]

NARRATIVE: CASE EVENT DATE: 20240913
